FAERS Safety Report 9026268 (Version 1)
Quarter: 2012Q4

REPORT INFORMATION
  Report Type: Spontaneous
  Country: US (occurrence: None)
  Receive Date: 20121214
  Receipt Date: 20121214
  Transmission Date: 20130627
  Serious: Yes (Other)
  Sender: FDA-Public Use
  Company Number: None

PATIENT
  Sex: Male
  Weight: 23.61 kg

DRUGS (1)
  1. DEXMETHYLPHENIDATE HYDROCHLORIDE [Suspect]
     Indication: ADHD
     Dosage: 20 MG 1 Tab BID Oral
     Route: 048
     Dates: start: 20110829, end: 20110910

REACTIONS (2)
  - Product substitution issue [None]
  - Jaundice [None]
